FAERS Safety Report 18958722 (Version 1)
Quarter: 2021Q1

REPORT INFORMATION
  Report Type: Spontaneous
  Country: US (occurrence: US)
  Receive Date: 20210302
  Receipt Date: 20210302
  Transmission Date: 20210420
  Serious: No
  Sender: FDA-Public Use
  Company Number: US-ELI_LILLY_AND_COMPANY-US202102002420

PATIENT
  Sex: Female

DRUGS (1)
  1. BAMLANIVIMAB. [Suspect]
     Active Substance: BAMLANIVIMAB
     Indication: COVID-19
     Dosage: UNK, SINGLE
     Route: 065
     Dates: start: 20210129

REACTIONS (5)
  - Nausea [Unknown]
  - Insomnia [Unknown]
  - Body temperature decreased [Unknown]
  - Hypoaesthesia [Recovered/Resolved]
  - Peripheral coldness [Recovered/Resolved]
